FAERS Safety Report 8131748-3 (Version None)
Quarter: 2012Q1

REPORT INFORMATION
  Report Type: 
  Country: None (occurrence: None)
  Receive Date: 20120213
  Receipt Date: 20120203
  Transmission Date: 20120608
  Serious: Yes (Other)
  Sender: FDA-Public Use
  Company Number: US-JNJFOC-20120202544

PATIENT
  Sex: Male

DRUGS (1)
  1. XARELTO [Suspect]
     Indication: HIP ARTHROPLASTY
     Route: 048
     Dates: start: 20120109, end: 20120203

REACTIONS (2)
  - TOOTH INFECTION [None]
  - TOOTH INJURY [None]
